FAERS Safety Report 16930194 (Version 1)
Quarter: 2019Q4

REPORT INFORMATION
  Report Type: Spontaneous
  Country: US (occurrence: US)
  Receive Date: 20190826
  Receipt Date: 20190826
  Transmission Date: 20200122
  Serious: No
  Sender: FDA-Public Use
  Company Number: None

PATIENT
  Age: 75 Year
  Sex: Male

DRUGS (1)
  1. ERLEADA [Suspect]
     Active Substance: APALUTAMIDE
     Indication: PROSTATE CANCER
     Route: 048
     Dates: start: 201907, end: 20190826

REACTIONS (5)
  - Hypertension [None]
  - Muscle spasms [None]
  - Constipation [None]
  - Disorientation [None]
  - Vision blurred [None]

NARRATIVE: CASE EVENT DATE: 20190826
